FAERS Safety Report 24966519 (Version 2)
Quarter: 2025Q1

REPORT INFORMATION
  Report Type: Report from Study
  Country: US (occurrence: US)
  Receive Date: 20250213
  Receipt Date: 20250305
  Transmission Date: 20250409
  Serious: Yes (Other)
  Sender: TEVA
  Company Number: US-TEVA-VS-3189250

PATIENT
  Age: 61 Year
  Sex: Female

DRUGS (3)
  1. AJOVY [Suspect]
     Active Substance: FREMANEZUMAB-VFRM
     Indication: Migraine
     Dosage: 225MG/1.5ML
     Route: 058
  2. AUSTEDO [Suspect]
     Active Substance: DEUTETRABENAZINE
     Indication: Huntington^s disease
     Route: 065
  3. DEVICE [Suspect]
     Active Substance: DEVICE
     Route: 065

REACTIONS (8)
  - Anal squamous cell carcinoma [Unknown]
  - Dementia [Unknown]
  - Feeling abnormal [Unknown]
  - Shoulder fracture [Unknown]
  - Nervousness [Unknown]
  - Inappropriate schedule of product administration [Unknown]
  - Migraine [Unknown]
  - Rectal cancer [Unknown]
